APPROVED DRUG PRODUCT: CHLORPROMAZINE HYDROCHLORIDE
Active Ingredient: CHLORPROMAZINE HYDROCHLORIDE
Strength: 25MG/ML
Dosage Form/Route: INJECTABLE;INJECTION
Application: A089563 | Product #001
Applicant: MARSAM PHARMACEUTICALS LLC
Approved: Apr 15, 1988 | RLD: No | RS: No | Type: DISCN